FAERS Safety Report 8918225 (Version 2)
Quarter: 2012Q4

REPORT INFORMATION
  Report Type: Report from Study
  Country: DE (occurrence: DE)
  Receive Date: 20121120
  Receipt Date: 20121205
  Transmission Date: 20130627
  Serious: Yes (Other)
  Sender: FDA-Public Use
  Company Number: PHHY2012DE100666

PATIENT
  Sex: Female

DRUGS (3)
  1. FTY 720 [Suspect]
     Dosage: 0.5 mg, QD
     Route: 048
     Dates: start: 20110523
  2. THYRONAJOD [Concomitant]
     Dosage: 75 ug, UNK
     Dates: start: 200701, end: 20120618
  3. EUTHYROX [Concomitant]
     Dosage: 88 ug, UNK
     Dates: start: 20120619

REACTIONS (1)
  - Autoimmune thyroiditis [Not Recovered/Not Resolved]
